FAERS Safety Report 8581144-X (Version None)
Quarter: 2012Q3

REPORT INFORMATION
  Report Type: 
  Country: None (occurrence: None)
  Receive Date: 20120809
  Receipt Date: 20120730
  Transmission Date: 20120928
  Serious: Yes (Other)
  Sender: FDA-Public Use
  Company Number: US-JNJFOC-20120802602

PATIENT
  Age: 57 Year
  Sex: Female
  Weight: 77.6 kg

DRUGS (21)
  1. VELCADE [Suspect]
     Route: 042
  2. VINCRISTINE SULFATE [Suspect]
     Dosage: GIVEN ON DAY 4 DUE TO LATE START OF TREATMENT ON DAY 1, CYCLE 1
     Route: 042
     Dates: start: 20081023, end: 20081023
  3. RITUXIMAB [Suspect]
     Route: 042
  4. CYCLOPHOSPHAMIDE [Suspect]
     Route: 042
  5. CYCLOPHOSPHAMIDE [Suspect]
     Dosage: 300 MG/M2 OVER 3 HR, Q12HR ON DAYS 1-3, TREATMENT CARRIED OVER TO DAY 4(LATE START ON DAY 1) CYCLE 1
     Route: 042
     Dates: start: 20081020, end: 20081023
  6. DEXAMETHASONE [Suspect]
     Indication: MANTLE CELL LYMPHOMA
     Dosage: 40 MG ORAL OR INTRAVENOUS ON DAYS 1-4, CYCLE 1
     Route: 065
     Dates: start: 20081020, end: 20081023
  7. DOXORUBICIN HYDROCHLORIDE [Suspect]
     Dosage: 25 MG/M2 OVER 48 HOURS ON DAYS 1-2, CYCLE 1
     Route: 042
     Dates: start: 20081020, end: 20081022
  8. DOXORUBICIN HYDROCHLORIDE [Suspect]
     Indication: MANTLE CELL LYMPHOMA
     Dosage: 25 MG/M2 OVER 48 HOURS ON DAYS 1-2, CYCLE 2
     Route: 042
     Dates: start: 20081110, end: 20081112
  9. NEULASTA [Suspect]
     Indication: MANTLE CELL LYMPHOMA
     Dosage: ON DAY 5, CYCLE 2
     Route: 058
     Dates: start: 20081114, end: 20081114
  10. DOXORUBICIN HYDROCHLORIDE [Suspect]
     Route: 042
  11. VELCADE [Suspect]
     Indication: MANTLE CELL LYMPHOMA
     Dosage: 1.3 MG/M2 OVER 3-5 SECONDS ON DAYS 1 AND 4, CYCLE 1
     Route: 042
     Dates: start: 20081110, end: 20081113
  12. CYCLOPHOSPHAMIDE [Suspect]
     Indication: MANTLE CELL LYMPHOMA
     Dosage: 300 MG/M2 OVER 3 HR, Q12HR ON DAYS 1-3, TREATMENT CARRIED OVER TO DAY 4(LATE START ON DAY 1) CYCLE 2
     Route: 042
     Dates: start: 20081110, end: 20081113
  13. VINCRISTINE SULFATE [Suspect]
     Indication: MANTLE CELL LYMPHOMA
     Dosage: GIVEN ON DAY 4 DUE TO LATE START OF TREATMENT ON DAY 1, CYCLE 2
     Route: 042
     Dates: start: 20081113, end: 20081113
  14. VINCRISTINE SULFATE [Suspect]
     Route: 042
  15. DEXAMETHASONE [Suspect]
     Route: 065
  16. VELCADE [Suspect]
     Dosage: 1.3 MG/M2 OVER 3-5 SECONDS ON DAYS 1 AND 4, CYCLE 1
     Route: 042
     Dates: start: 20081020, end: 20081023
  17. RITUXIMAB [Suspect]
     Indication: MANTLE CELL LYMPHOMA
     Dosage: 375 MG/M2 AT 50-400 MG/HOUR ON DAY 1, CYCLE 1
     Route: 042
     Dates: start: 20081020, end: 20081020
  18. RITUXIMAB [Suspect]
     Dosage: 375 MG/M2 AT 50-400 MG/HOUR ON DAY 1, CYCLE 2
     Route: 042
     Dates: start: 20081110, end: 20081110
  19. NEULASTA [Suspect]
     Route: 058
  20. DEXAMETHASONE [Suspect]
     Dosage: 40 MG ORAL OR INTRAVENOUS ON DAYS 1-4, CYCLE 2
     Route: 065
     Dates: start: 20081110, end: 20081113
  21. NEULASTA [Suspect]
     Dosage: ON DAY 5, CYCLE 1
     Route: 058
     Dates: start: 20081024, end: 20081024

REACTIONS (2)
  - LYMPHOPENIA [None]
  - WHITE BLOOD CELL COUNT DECREASED [None]
